FAERS Safety Report 16995446 (Version 1)
Quarter: 2019Q4

REPORT INFORMATION
  Report Type: Spontaneous
  Country: US (occurrence: US)
  Receive Date: 20191105
  Receipt Date: 20191105
  Transmission Date: 20200122
  Serious: No
  Sender: FDA-Public Use
  Company Number: US-SA-2019SA303563

PATIENT
  Age: 78 Year
  Sex: Male

DRUGS (1)
  1. PRALUENT [Suspect]
     Active Substance: ALIROCUMAB
     Indication: HYPERTENSION
     Dosage: 75 MG, QOW
     Route: 058
     Dates: start: 20190305

REACTIONS (1)
  - Heart valve stenosis [Not Recovered/Not Resolved]
